FAERS Safety Report 6358552-0 (Version None)
Quarter: 2009Q3

REPORT INFORMATION
  Report Type: 
  Country: None (occurrence: None)
  Receive Date: 20090914
  Receipt Date: 20090901
  Transmission Date: 20100115
  Serious: Yes (Hospitalization)
  Sender: FDA-Public Use
  Company Number: 2009AP003585

PATIENT
  Age: 60 Year
  Sex: Male

DRUGS (2)
  1. CLONAZEPAM [Suspect]
  2. LORAZEPAM [Concomitant]

REACTIONS (9)
  - CATATONIA [None]
  - CONFUSIONAL STATE [None]
  - DRUG WITHDRAWAL SYNDROME [None]
  - GRIMACING [None]
  - HYPOPHAGIA [None]
  - MUSCLE RIGIDITY [None]
  - MUTISM [None]
  - NEGATIVISM [None]
  - STEREOTYPY [None]
